FAERS Safety Report 9026725 (Version 1)
Quarter: 2013Q1

REPORT INFORMATION
  Report Type: Spontaneous
  Country: US (occurrence: None)
  Receive Date: 20130114
  Receipt Date: 20130114
  Transmission Date: 20140127
  Serious: Yes (Other)
  Sender: FDA-Public Use
  Company Number: None

PATIENT
  Age: 71 Year
  Sex: Female
  Weight: 113.4 kg

DRUGS (1)
  1. NITROFURANTOIN [Suspect]
     Indication: CYSTITIS
     Route: 048
     Dates: start: 20121203, end: 20121204

REACTIONS (8)
  - Arthralgia [None]
  - Myalgia [None]
  - Pyrexia [None]
  - Joint swelling [None]
  - Joint swelling [None]
  - Feeling hot [None]
  - Pain in extremity [None]
  - Local swelling [None]
